FAERS Safety Report 22096182 (Version 1)
Quarter: 2023Q1

REPORT INFORMATION
  Report Type: Spontaneous
  Country: US (occurrence: US)
  Receive Date: 20230315
  Receipt Date: 20230315
  Transmission Date: 20230418
  Serious: No
  Sender: FDA-Public Use
  Company Number: US-Axsome Therapeutics, Inc.-AXS202211-003467

PATIENT
  Age: 42 Year
  Sex: Male

DRUGS (1)
  1. AUVELITY [Suspect]
     Active Substance: BUPROPION HYDROCHLORIDE\DEXTROMETHORPHAN HYDROBROMIDE
     Indication: Product used for unknown indication
     Dosage: ON DAY 4 HIS DOSAGE WAS INCREASED TO ONE TABLET, TWICE A DAY SEPARATED BY EVERY 8 HOURS
     Route: 048

REACTIONS (1)
  - Dissociative disorder [Recovered/Resolved]
